FAERS Safety Report 26020280 (Version 1)
Quarter: 2025Q4

REPORT INFORMATION
  Report Type: Spontaneous
  Country: US (occurrence: US)
  Receive Date: 20251110
  Receipt Date: 20251110
  Transmission Date: 20260117
  Serious: No
  Sender: GALPHARM INTERNATIONAL
  Company Number: US-PERRIGO-25US007431

PATIENT
  Age: 66 Year
  Sex: Female
  Weight: 83.9 kg

DRUGS (3)
  1. POLYETHYLENE GLYCOL 3350 [Suspect]
     Active Substance: POLYETHYLENE GLYCOL 3350
     Indication: Bowel preparation
     Dosage: 80 G, OVER THREE HOURS
     Route: 048
     Dates: start: 20250608, end: 20250608
  2. POLYETHYLENE GLYCOL 3350 [Suspect]
     Active Substance: POLYETHYLENE GLYCOL 3350
     Dosage: 80 G, OVER THREE HOURS
     Route: 048
     Dates: start: 20250608, end: 20250608
  3. POLYETHYLENE GLYCOL 3350 [Suspect]
     Active Substance: POLYETHYLENE GLYCOL 3350
     Dosage: 765 G, SINGLE
     Route: 048
     Dates: start: 202406, end: 202406

REACTIONS (3)
  - Drug effective for unapproved indication [Unknown]
  - Product preparation issue [Unknown]
  - Overdose [Unknown]

NARRATIVE: CASE EVENT DATE: 20240601
